FAERS Safety Report 7783858-8 (Version None)
Quarter: 2011Q3

REPORT INFORMATION
  Report Type: 
  Country: None (occurrence: None)
  Receive Date: 20110928
  Receipt Date: 20110927
  Transmission Date: 20111222
  Serious: Yes (Hospitalization)
  Sender: FDA-Public Use
  Company Number: US-GLAXOSMITHKLINE-A0877043A

PATIENT
  Age: 70 Year
  Sex: Male
  Weight: 60 kg

DRUGS (17)
  1. ZOCOR [Concomitant]
  2. AMBIEN [Concomitant]
  3. NOVOLIN 70/30 [Concomitant]
  4. NOVOLOG [Concomitant]
  5. AVANDIA [Suspect]
     Indication: DIABETES MELLITUS
     Dosage: 2MG PER DAY
     Route: 048
     Dates: start: 20050801, end: 20061101
  6. NEURONTIN [Concomitant]
  7. LISINOPRIL [Concomitant]
  8. ASPIRIN [Concomitant]
  9. GLUCOTROL [Concomitant]
  10. LANTUS [Concomitant]
  11. COREG [Concomitant]
  12. WELLBUTRIN [Concomitant]
  13. GLIPIZIDE [Concomitant]
  14. SPIRONOLACTONE [Concomitant]
  15. DIGOXIN [Concomitant]
  16. LASIX [Concomitant]
  17. COZAAR [Concomitant]

REACTIONS (7)
  - CEREBROVASCULAR ACCIDENT [None]
  - CORONARY ARTERY DISEASE [None]
  - CARDIAC FAILURE CONGESTIVE [None]
  - MYOCARDIAL INFARCTION [None]
  - CARDIAC ARREST [None]
  - PLEURAL EFFUSION [None]
  - ISCHAEMIC CARDIOMYOPATHY [None]
